FAERS Safety Report 5246227-0 (Version None)
Quarter: 2007Q1

REPORT INFORMATION
  Report Type: 
  Country: None (occurrence: None)
  Receive Date: 20070221
  Receipt Date: 20070214
  Transmission Date: 20070707
  Serious: Yes (Death, Other)
  Sender: FDA-Public Use
  Company Number: 430001E07ITA

PATIENT
  Age: 70 Year
  Sex: Female

DRUGS (4)
  1. NOVANTRONE [Suspect]
     Dosage: 10 MG, ONCE, UNKNOWN
     Dates: start: 20070112, end: 20070118
  2. CYTARABINE [Suspect]
     Dosage: 140 MG, ONCE, UNKNOWN
     Dates: start: 20070112, end: 20070118
  3. CYTARABINE [Suspect]
     Dosage: 140 MG, ONCE, UNKNOWN
     Dates: start: 20070112, end: 20070118
  4. ANTIBIOTICS [Concomitant]

REACTIONS (6)
  - BACTERIAL SEPSIS [None]
  - DIARRHOEA [None]
  - GASTROINTESTINAL INFLAMMATION [None]
  - MELAENA [None]
  - RECTAL HAEMORRHAGE [None]
  - SEPTIC SHOCK [None]
